FAERS Safety Report 10773287 (Version 1)
Quarter: 2015Q1

REPORT INFORMATION
  Report Type: Spontaneous
  Country: US (occurrence: US)
  Receive Date: 20150208
  Receipt Date: 20150208
  Transmission Date: 20150721
  Serious: No
  Sender: FDA-Public Use
  Company Number: US-ACORDA-ACO_107041_2014

PATIENT
  Age: 47 Year
  Sex: Female

DRUGS (4)
  1. AVONEX [Concomitant]
     Active Substance: INTERFERON BETA-1A
     Dosage: 30 ?G, EVERY WEEK
     Route: 030
     Dates: start: 20031114
  2. AMPYRA [Suspect]
     Active Substance: DALFAMPRIDINE
     Indication: MULTIPLE SCLEROSIS
     Route: 065
  3. AVONEX [Concomitant]
     Active Substance: INTERFERON BETA-1A
     Indication: PRODUCT USED FOR UNKNOWN INDICATION
     Dosage: 30 ?G, EVERY WEEK
     Route: 030
     Dates: start: 20021101
  4. AVONEX [Concomitant]
     Active Substance: INTERFERON BETA-1A
     Dosage: 30 ?G, EVERY WEEK
     Route: 030
     Dates: start: 20041101

REACTIONS (3)
  - Visual impairment [Not Recovered/Not Resolved]
  - Frustration [Not Recovered/Not Resolved]
  - Food poisoning [Recovered/Resolved]

NARRATIVE: CASE EVENT DATE: 201409
